FAERS Safety Report 10489054 (Version 2)
Quarter: 2014Q4

REPORT INFORMATION
  Report Type: Spontaneous
  Country: US (occurrence: US)
  Receive Date: 20141002
  Receipt Date: 20141119
  Transmission Date: 20150528
  Serious: No
  Sender: FDA-Public Use
  Company Number: US-JNJFOC-20140925512

PATIENT
  Age: 31 Year
  Sex: Male

DRUGS (1)
  1. INVEGA [Suspect]
     Active Substance: PALIPERIDONE
     Indication: PSYCHIATRIC SYMPTOM
     Route: 048
     Dates: start: 20140910, end: 20140914

REACTIONS (4)
  - Fear of open spaces [Unknown]
  - Paranoia [Recovering/Resolving]
  - Thinking abnormal [Unknown]
  - Insomnia [Unknown]

NARRATIVE: CASE EVENT DATE: 20140910
